FAERS Safety Report 19149632 (Version 7)
Quarter: 2024Q3

REPORT INFORMATION
  Report Type: Report from Study
  Country: US (occurrence: US)
  Receive Date: 20210417
  Receipt Date: 20240820
  Transmission Date: 20241016
  Serious: Yes (Hospitalization, Other)
  Sender: TAKEDA
  Company Number: US-TAKEDA-US202008683

PATIENT
  Sex: Female

DRUGS (2)
  1. HUMAN IMMUNOGLOBULIN G\HYALURONIDASE RECOMBINANT HUMAN [Suspect]
     Active Substance: HUMAN IMMUNOGLOBULIN G\HYALURONIDASE (HUMAN RECOMBINANT)
     Indication: Primary immunodeficiency syndrome
     Dosage: 22.5 GRAM, Q2WEEKS
     Route: 058
  2. CUVITRU [Suspect]
     Active Substance: HUMAN IMMUNOGLOBULIN G
     Indication: Primary immunodeficiency syndrome
     Dosage: 30 GRAM, Q2WEEKS
     Route: 058

REACTIONS (13)
  - Spinal fracture [Unknown]
  - Fall [Recovering/Resolving]
  - Ankle fracture [Recovering/Resolving]
  - Inappropriate schedule of product administration [Unknown]
  - Infection [Recovering/Resolving]
  - Osteoporosis [Unknown]
  - Illness [Unknown]
  - Sinusitis bacterial [Unknown]
  - Sinusitis fungal [Unknown]
  - Dysphonia [Unknown]
  - Sinusitis [Recovering/Resolving]
  - Influenza [Recovered/Resolved]
  - Fatigue [Unknown]
